FAERS Safety Report 9097112 (Version 1)
Quarter: 2013Q1

REPORT INFORMATION
  Report Type: Spontaneous
  Country: US (occurrence: None)
  Receive Date: 20130125
  Receipt Date: 20130125
  Transmission Date: 20140127
  Serious: Yes (Life-Threatening)
  Sender: FDA-Public Use
  Company Number: 2013SA002515

PATIENT
  Age: 55 Year
  Sex: Female

DRUGS (1)
  1. ASPERCREME / UNKNOWN / UNKNOWN [Suspect]
     Indication: ANALGESIC THERAPY
     Route: 061

REACTIONS (2)
  - Anaphylactic shock [None]
  - Urticaria [None]
